FAERS Safety Report 26067933 (Version 1)
Quarter: 2025Q4

REPORT INFORMATION
  Report Type: Spontaneous
  Country: US (occurrence: US)
  Receive Date: 20251120
  Receipt Date: 20251120
  Transmission Date: 20260117
  Serious: No
  Sender: CIPLA
  Company Number: US-CIPLA LTD.-2025US14359

PATIENT

DRUGS (4)
  1. ALBUTEROL [Suspect]
     Active Substance: ALBUTEROL
     Indication: COVID-19
     Dosage: 180 MICROGRAM, PRN (2 PUFFS) (EVERY 4 HOURS AS NEEDED) VIA MOUTH
     Dates: start: 20251104
  2. VALSARTAN [Concomitant]
     Active Substance: VALSARTAN
     Indication: Hypertension
     Dosage: 1 MILLIGRAM, QD (ONE TIME IN A DAY)
     Route: 065
  3. DOXYCYCLINE [Concomitant]
     Active Substance: DOXYCYCLINE
     Indication: COVID-19
     Dosage: 100 MILLIGRAM, BID (TWICE A DAY)
     Route: 065
     Dates: start: 20251104
  4. TESSALON [Concomitant]
     Active Substance: BENZONATATE
     Indication: Cough
     Dosage: 200 MILLIGRAM, PRN (BY MOUTH THREE TIMES AS NEEDED)
     Route: 048

REACTIONS (6)
  - Drug dose omission by device [Unknown]
  - Device delivery system issue [Unknown]
  - Off label use [Unknown]
  - Wrong technique in product usage process [Unknown]
  - Accidental exposure to product [Unknown]
  - Incorrect dose administered by device [Unknown]

NARRATIVE: CASE EVENT DATE: 20251101
